FAERS Safety Report 9135314 (Version 1)
Quarter: 2013Q1

REPORT INFORMATION
  Report Type: Spontaneous
  Country: US (occurrence: US)
  Receive Date: 20130304
  Receipt Date: 20130304
  Transmission Date: 20140127
  Serious: No
  Sender: FDA-Public Use
  Company Number: US-BAYER-2013-022884

PATIENT
  Age: 73 Year
  Sex: Female
  Weight: 50.79 kg

DRUGS (7)
  1. ALEVE CAPLET/TABLET,MIDOL EXTENDED RELIEF CAPLET [Suspect]
     Indication: ANALGESIC THERAPY
     Dosage: 1 DF, PRN
     Route: 048
     Dates: start: 20130210, end: 20130211
  2. BAYER ASPIRIN REGIMEN ADULT LOW STRENGTH [Suspect]
     Indication: ISCHAEMIC HEART DISEASE PROPHYLAXIS
     Dosage: 1 DF, QD
     Route: 048
     Dates: start: 2011
  3. BAYER MIGRAINE FORMULA [Suspect]
     Indication: HEADACHE
     Dosage: 1 DF, PRN
     Route: 048
     Dates: start: 201302
  4. TOPAMAX [Concomitant]
  5. ZOMIG [Concomitant]
  6. STADOL [Concomitant]
  7. THYROXINE [Concomitant]

REACTIONS (1)
  - Muscle spasms [Recovered/Resolved]
